FAERS Safety Report 7532625-9 (Version None)
Quarter: 2011Q2

REPORT INFORMATION
  Report Type: 
  Country: None (occurrence: None)
  Receive Date: 20110608
  Receipt Date: 20110606
  Transmission Date: 20111010
  Serious: Yes (Hospitalization)
  Sender: FDA-Public Use
  Company Number: CHPA2011US07635

PATIENT
  Age: 73 Year
  Sex: Female

DRUGS (2)
  1. VOLTAREN [Suspect]
     Indication: ARTHRITIS
     Dosage: 2 GRAMS, TID
     Route: 061
     Dates: start: 20110401
  2. VOLTAREN [Suspect]
     Dosage: ^MAXIMUM DOSAGE^, UNK
     Route: 061

REACTIONS (2)
  - INFECTION [None]
  - UNDERDOSE [None]
